FAERS Safety Report 8256833-7 (Version None)
Quarter: 2012Q1

REPORT INFORMATION
  Report Type: 
  Country: None (occurrence: None)
  Receive Date: 20120330
  Receipt Date: 20120222
  Transmission Date: 20120608
  Serious: Yes (Hospitalization)
  Sender: FDA-Public Use
  Company Number: ES-025417

PATIENT
  Age: 79 Year
  Sex: Male
  Weight: 75.8 kg

DRUGS (6)
  1. CEFTRIAXONE [Concomitant]
  2. (OFATUMUMAB) [Suspect]
     Indication: CHRONIC LYMPHOCYTIC LEUKAEMIA
     Route: 042
     Dates: start: 20100430
  3. AZITHROMYCIN [Concomitant]
  4. (CHLORAMBUCIL) [Suspect]
     Indication: CHRONIC LYMPHOCYTIC LEUKAEMIA
     Route: 048
     Dates: start: 20100430
  5. (CEFTAZIDIME) [Concomitant]
  6. (CEFDITOREN) [Concomitant]

REACTIONS (2)
  - SPUTUM DISCOLOURED [None]
  - LOBAR PNEUMONIA [None]
